FAERS Safety Report 5723156-7 (Version None)
Quarter: 2008Q2

REPORT INFORMATION
  Report Type: 
  Country: None (occurrence: None)
  Receive Date: 20080425
  Receipt Date: 20080121
  Transmission Date: 20081010
  Serious: No
  Sender: FDA-Public Use
  Company Number: 8031968

PATIENT
  Age: 14 Year
  Sex: Male

DRUGS (6)
  1. METHYLPHENIDATE HCL [Suspect]
     Indication: ATTENTION DEFICIT/HYPERACTIVITY DISORDER
     Dosage: 30 MG /D
     Dates: start: 20070110, end: 20070116
  2. METHYLPHENIDATE HCL [Suspect]
     Indication: ATTENTION DEFICIT/HYPERACTIVITY DISORDER
     Dosage: 40 MG /D
     Dates: start: 20070117, end: 20070130
  3. METHYLPHENIDATE HCL [Suspect]
     Indication: ATTENTION DEFICIT/HYPERACTIVITY DISORDER
     Dosage: 40 MG /D
     Dates: start: 20070131, end: 20070305
  4. METHYLPHENIDATE HCL [Suspect]
     Indication: ATTENTION DEFICIT/HYPERACTIVITY DISORDER
     Dosage: 30 MG 1/D
     Dates: start: 20070306
  5. METHYLPHENIDATE HCL [Suspect]
     Indication: ATTENTION DEFICIT/HYPERACTIVITY DISORDER
     Dosage: 10 MG 1 /D PO
     Route: 048
     Dates: start: 20070306
  6. MEDIKINET [Concomitant]

REACTIONS (5)
  - APATHY [None]
  - FATIGUE [None]
  - MOROSE [None]
  - ONYCHOPHAGIA [None]
  - TIC [None]
